FAERS Safety Report 14700666 (Version 1)
Quarter: 2018Q1

REPORT INFORMATION
  Report Type: Report from Study
  Country: US (occurrence: US)
  Receive Date: 20180330
  Receipt Date: 20180330
  Transmission Date: 20180509
  Serious: Yes (Hospitalization, Disabling, Other)
  Sender: FDA-Public Use
  Company Number: US-GILEAD-2018-0329361

PATIENT
  Age: 47 Year
  Sex: Male

DRUGS (10)
  1. FAMOTIDINE. [Suspect]
     Active Substance: FAMOTIDINE
     Indication: GASTRITIS
     Dosage: 20MG, ONE ORAL TABLET PER DAY
     Route: 048
     Dates: start: 201709
  2. MIRTAZAPINE. [Suspect]
     Active Substance: MIRTAZAPINE
     Indication: DEPRESSION
     Dosage: 45MG, ORAL TABLET ONCE PER DAY
     Route: 048
     Dates: start: 200807
  3. MULTI VITAMIN                      /08408501/ [Suspect]
     Active Substance: VITAMINS
     Indication: SUPPLEMENTATION THERAPY
     Dosage: 45MG, ONE ORAL TABLET PER DAY
     Route: 048
     Dates: start: 1998
  4. PRAVASTATIN. [Suspect]
     Active Substance: PRAVASTATIN
     Indication: MYOCARDIAL INFARCTION
     Dosage: 40MG
     Route: 065
  5. ELVITEGRAVIR/COBICISTAT/EMTRICITABINE/TENOFOVIR ALAFENAMIDE [Suspect]
     Active Substance: COBICISTAT\ELVITEGRAVIR\EMTRICITABINE\TENOFOVIR
     Indication: HIV INFECTION
     Dosage: 1 DF, QD
     Route: 048
     Dates: start: 2015
  6. HYDROXYZINE [Suspect]
     Active Substance: HYDROXYZINE HYDROCHLORIDE
     Indication: ANXIETY
     Dosage: 50MG, ONE CAPSULE PER DAY
     Route: 065
  7. TRANXENE [Suspect]
     Active Substance: CLORAZEPATE DIPOTASSIUM
     Indication: ANXIETY
     Dosage: 15MG, ONE ORAL TABLET PER DAY
     Route: 048
     Dates: start: 201510
  8. WARFIN [Suspect]
     Active Substance: WARFARIN
     Indication: COAGULOPATHY
     Dosage: 10MG, ONE ORAL TABLET PER DAY
     Route: 048
     Dates: start: 200508
  9. TRAZODONE [Suspect]
     Active Substance: TRAZODONE HYDROCHLORIDE
     Indication: SLEEP DISORDER
     Dosage: 50MG, ONE ORAL TABLET AS NEEDED
     Route: 048
     Dates: start: 2008
  10. TRANXENE [Suspect]
     Active Substance: CLORAZEPATE DIPOTASSIUM
     Indication: POST-TRAUMATIC STRESS DISORDER

REACTIONS (4)
  - Anxiety [Not Recovered/Not Resolved]
  - Pulmonary embolism [Recovered/Resolved with Sequelae]
  - Non-Hodgkin^s lymphoma [Recovering/Resolving]
  - Post-traumatic stress disorder [Not Recovered/Not Resolved]

NARRATIVE: CASE EVENT DATE: 199606
